FAERS Safety Report 10055278 (Version 2)
Quarter: 2014Q2

REPORT INFORMATION
  Report Type: Report from Study
  Country: ES (occurrence: ES)
  Receive Date: 20140403
  Receipt Date: 20140610
  Transmission Date: 20141212
  Serious: Yes (Hospitalization)
  Sender: FDA-Public Use
  Company Number: ES-ROCHE-1372333

PATIENT
  Age: 74 Year
  Sex: Female
  Weight: 67 kg

DRUGS (4)
  1. BEVACIZUMAB [Suspect]
     Indication: COLON CANCER METASTATIC
     Route: 042
     Dates: start: 20140213, end: 20140313
  2. OXALIPLATIN [Suspect]
     Indication: COLON CANCER METASTATIC
     Route: 042
     Dates: start: 20140213, end: 20140313
  3. FLUOROURACIL [Suspect]
     Indication: COLON CANCER METASTATIC
     Route: 040
     Dates: start: 20140213, end: 20140313
  4. FOLINIC ACID [Suspect]
     Indication: COLON CANCER METASTATIC
     Dosage: MOST RECENT DOSE: 13/MAR/2014
     Route: 042
     Dates: start: 20140213

REACTIONS (3)
  - Diarrhoea [Recovering/Resolving]
  - Mucosal inflammation [Not Recovered/Not Resolved]
  - Decreased appetite [Not Recovered/Not Resolved]
